FAERS Safety Report 9398072 (Version 2)
Quarter: 2013Q3

REPORT INFORMATION
  Report Type: Spontaneous
  Country: CH (occurrence: CH)
  Receive Date: 20130712
  Receipt Date: 20130725
  Transmission Date: 20140515
  Serious: Yes (Life-Threatening, Hospitalization, Other)
  Sender: FDA-Public Use
  Company Number: PHHY2013CH073430

PATIENT
  Age: 67 Year
  Sex: Male

DRUGS (3)
  1. ACENOCOUMAROL [Suspect]
     Indication: PULMONARY EMBOLISM
     Dosage: 3 MG, DAILY
     Route: 048
  2. ACENOCOUMAROL [Interacting]
     Indication: THROMBOSIS
     Dosage: UNK UKN, UNK
  3. AMOXICILLIN, CLAVULANATE [Interacting]
     Indication: UPPER RESPIRATORY TRACT INFECTION

REACTIONS (6)
  - Epistaxis [Unknown]
  - Anaemia [Unknown]
  - International normalised ratio increased [Unknown]
  - Myocardial infarction [Unknown]
  - Cardiac failure chronic [Unknown]
  - Drug interaction [Unknown]
